FAERS Safety Report 10537010 (Version 2)
Quarter: 2014Q4

REPORT INFORMATION
  Report Type: Report from Study
  Country: JP (occurrence: JP)
  Receive Date: 20141022
  Receipt Date: 20141022
  Transmission Date: 20150529
  Serious: Yes (Hospitalization)
  Sender: FDA-Public Use
  Company Number: JP-EISAI MEDICAL RESEARCH-E2020-13113-CLI-JP

PATIENT
  Age: 85 Year
  Sex: Male
  Weight: 56 kg

DRUGS (11)
  1. MEMARY [Interacting]
     Active Substance: MEMANTINE HYDROCHLORIDE
     Route: 048
     Dates: start: 20131019
  2. EVIPROSTAT [Concomitant]
     Active Substance: CHIMAPHILA UMBELLATA\MANGANESE CHLORIDE\POPULUS TREMULOIDES\SODIUM TAUROCHOLATE
     Indication: BENIGN PROSTATIC HYPERPLASIA
     Route: 048
     Dates: start: 19951224
  3. LAXOBERON [Concomitant]
     Active Substance: SODIUM PICOSULFATE
     Indication: CONSTIPATION
     Route: 048
     Dates: start: 20120116
  4. BUFFERIN [Concomitant]
     Active Substance: ASPIRIN
     Indication: THROMBOSIS PROPHYLAXIS
     Route: 048
     Dates: start: 20070622
  5. MEMARY [Suspect]
     Active Substance: MEMANTINE HYDROCHLORIDE
     Indication: DEMENTIA ALZHEIMER^S TYPE
     Route: 048
     Dates: start: 20110731, end: 20131018
  6. DONEPEZIL [Interacting]
     Active Substance: DONEPEZIL
     Indication: DEMENTIA ALZHEIMER^S TYPE
     Route: 048
     Dates: start: 20130324, end: 20130420
  7. BLOPRESS [Concomitant]
     Active Substance: CANDESARTAN CILEXETIL
     Indication: HYPERTENSION
     Route: 048
     Dates: start: 20080729
  8. DONEPEZIL [Interacting]
     Active Substance: DONEPEZIL
     Route: 048
     Dates: start: 20130421, end: 20131012
  9. DONEPEZIL [Interacting]
     Active Substance: DONEPEZIL
     Route: 048
     Dates: start: 20131013, end: 20131101
  10. BUP-4 [Concomitant]
     Active Substance: PROPIVERINE
     Indication: BENIGN PROSTATIC HYPERPLASIA
     Route: 048
     Dates: start: 20070628
  11. PROKREIN [Concomitant]
     Indication: DIZZINESS
     Route: 048
     Dates: start: 20080512

REACTIONS (2)
  - Restlessness [Recovered/Resolved]
  - Drug interaction [Recovered/Resolved]

NARRATIVE: CASE EVENT DATE: 20131015
